FAERS Safety Report 7803780-8 (Version None)
Quarter: 2011Q4

REPORT INFORMATION
  Report Type: 
  Country: None (occurrence: None)
  Receive Date: 20111010
  Receipt Date: 20111004
  Transmission Date: 20120403
  Serious: Yes (Other)
  Sender: FDA-Public Use
  Company Number: US-PFIZER INC-2011237105

PATIENT
  Sex: Female
  Weight: 113.38 kg

DRUGS (4)
  1. GLUCOSAMINE [Concomitant]
     Dosage: UNK
  2. EFFEXOR [Suspect]
     Indication: DEPRESSION
     Dosage: 75 MG, 5X/DAY
     Route: 048
     Dates: start: 19950101
  3. IBUPROFEN (ADVIL) [Concomitant]
     Dosage: UNK
  4. EFFEXOR [Suspect]
     Dosage: UNK

REACTIONS (2)
  - WEIGHT INCREASED [None]
  - FOOD CRAVING [None]
